FAERS Safety Report 7097733-8 (Version None)
Quarter: 2010Q4

REPORT INFORMATION
  Report Type: 
  Country: None (occurrence: None)
  Receive Date: 20101104
  Receipt Date: 20101020
  Transmission Date: 20110411
  Serious: Yes (Other)
  Sender: FDA-Public Use
  Company Number: OPIR20100039

PATIENT
  Sex: Male

DRUGS (1)
  1. OPANA [Suspect]
     Indication: DRUG DIVERSION

REACTIONS (1)
  - DRUG DIVERSION [None]
